FAERS Safety Report 4395233-7 (Version None)
Quarter: 2004Q3

REPORT INFORMATION
  Report Type: 
  Country: None (occurrence: None)
  Receive Date: 20040712
  Receipt Date: 20010705
  Transmission Date: 20050211
  Serious: Yes (Hospitalization, Other)
  Sender: FDA-Public Use
  Company Number: US-MERCK-01070525

PATIENT
  Age: 69 Year
  Sex: Female
  Weight: 86 kg

DRUGS (21)
  1. VICODIN [Concomitant]
     Route: 065
  2. ELAVIL [Concomitant]
     Route: 065
  3. ATENOLOL [Concomitant]
     Route: 065
  4. LIPITOR [Concomitant]
     Route: 065
  5. CELEBREX [Concomitant]
     Route: 065
     Dates: start: 20010307
  6. PLAVIX [Concomitant]
     Route: 065
  7. FLEXERIL [Concomitant]
     Route: 065
     Dates: start: 20010209, end: 20010301
  8. FLEXERIL [Concomitant]
     Route: 065
     Dates: start: 20010307, end: 20010319
  9. FLEXERIL [Concomitant]
     Route: 065
     Dates: start: 20010412
  10. PREMARIN [Concomitant]
     Route: 065
  11. PEPCID [Concomitant]
     Route: 048
  12. DYAZIDE [Concomitant]
     Indication: HYPERTENSION
     Route: 065
     Dates: end: 20010101
  13. ACCUPRIL [Concomitant]
     Route: 065
     Dates: start: 20010715
  14. VIOXX [Suspect]
     Indication: OSTEOARTHRITIS
     Route: 048
     Dates: start: 20000425, end: 20010101
  15. VIOXX [Suspect]
     Route: 048
     Dates: start: 20010209, end: 20010414
  16. VIOXX [Suspect]
     Indication: PAIN
     Route: 048
     Dates: start: 20000425, end: 20010101
  17. VIOXX [Suspect]
     Route: 048
     Dates: start: 20010209, end: 20010414
  18. ZOLOFT [Concomitant]
     Route: 065
     Dates: end: 20010301
  19. ZOLOFT [Concomitant]
     Route: 065
     Dates: start: 20010412
  20. ULTRAM [Concomitant]
     Route: 065
  21. CALAN [Concomitant]
     Route: 065
     Dates: start: 20010315

REACTIONS (21)
  - ABNORMAL DREAMS [None]
  - ASTHMA [None]
  - BLOOD PRESSURE INCREASED [None]
  - CAROTID ARTERY STENOSIS [None]
  - CEREBROVASCULAR ACCIDENT [None]
  - DEPRESSION [None]
  - DISTURBANCE IN ATTENTION [None]
  - DIZZINESS [None]
  - FALL [None]
  - FEAR [None]
  - HEADACHE [None]
  - MUSCLE STRAIN [None]
  - NEPHROSCLEROSIS [None]
  - NOCTURIA [None]
  - PAIN [None]
  - RENAL FAILURE ACUTE [None]
  - RESPIRATORY DISORDER [None]
  - ROTATOR CUFF SYNDROME [None]
  - SPINAL COLUMN STENOSIS [None]
  - STRESS SYMPTOMS [None]
  - THERAPEUTIC RESPONSE DECREASED [None]
